FAERS Safety Report 26198412 (Version 1)
Quarter: 2025Q4

REPORT INFORMATION
  Report Type: Spontaneous
  Country: EU (occurrence: EU)
  Receive Date: 20251224
  Receipt Date: 20251224
  Transmission Date: 20260117
  Serious: Yes (Disabling, Other)
  Sender: ELI LILLY AND COMPANY
  Company Number: EU-ELI_LILLY_AND_COMPANY-IT202512025605

PATIENT
  Age: 63 Year
  Sex: Female

DRUGS (1)
  1. MOUNJARO [Suspect]
     Active Substance: TIRZEPATIDE
     Indication: Product used for unknown indication
     Dosage: 10 MG, UNKNOWN
     Route: 065

REACTIONS (2)
  - Optic ischaemic neuropathy [Not Recovered/Not Resolved]
  - Pituitary tumour benign [Unknown]

NARRATIVE: CASE EVENT DATE: 20251128
